FAERS Safety Report 9614515 (Version 1)
Quarter: 2013Q4

REPORT INFORMATION
  Report Type: Spontaneous
  Country: US (occurrence: None)
  Receive Date: 20131009
  Receipt Date: 20131009
  Transmission Date: 20140711
  Serious: Yes (Life-Threatening)
  Sender: FDA-Public Use
  Company Number: None

PATIENT
  Age: 74 Year
  Sex: Male
  Weight: 87.3 kg

DRUGS (2)
  1. IODIXANOL [Suspect]
     Indication: CARDIOVASCULAR DISORDER
     Dosage: 100, ONCE , IV
     Route: 042
     Dates: start: 20130114, end: 20130114
  2. IODIXANOL [Suspect]
     Indication: SURGERY
     Dosage: 100, ONCE , IV
     Route: 042
     Dates: start: 20130114, end: 20130114

REACTIONS (3)
  - Anaphylactic shock [None]
  - Hypotension [None]
  - Bradycardia [None]
